FAERS Safety Report 5381990-X (Version None)
Quarter: 2007Q3

REPORT INFORMATION
  Report Type: 
  Country: None (occurrence: None)
  Receive Date: 20070709
  Receipt Date: 20070702
  Transmission Date: 20080115
  Serious: Yes (Life-Threatening)
  Sender: FDA-Public Use
  Company Number: B0474727A

PATIENT
  Age: 24 Year
  Sex: Female
  Weight: 42 kg

DRUGS (8)
  1. FLOLAN [Suspect]
     Indication: PULMONARY HYPERTENSION
     Route: 042
     Dates: start: 20060618
  2. BERAPROST SODIUM [Concomitant]
     Indication: PULMONARY HYPERTENSION
     Route: 048
     Dates: start: 20050322, end: 20060626
  3. SEPAMIT [Concomitant]
     Indication: PULMONARY HYPERTENSION
     Dosage: 40MG PER DAY
     Route: 048
     Dates: start: 20041228
  4. TRACLEER [Concomitant]
     Indication: PULMONARY HYPERTENSION
     Route: 048
     Dates: start: 20050322
  5. CEFAMEZIN [Concomitant]
     Indication: INFECTION
     Dosage: 2G PER DAY
     Route: 042
     Dates: start: 20060616, end: 20060627
  6. ZANTAC [Concomitant]
     Indication: GASTRIC ULCER
     Dates: start: 20060618, end: 20060623
  7. DOPAMINE HCL [Concomitant]
     Indication: CARDIAC FAILURE
     Route: 042
     Dates: start: 20060616, end: 20060624
  8. DOBUTREX [Concomitant]
     Indication: CARDIAC FAILURE
     Route: 042
     Dates: start: 20060616, end: 20060703

REACTIONS (1)
  - HYPOXIA [None]
